FAERS Safety Report 11618806 (Version 2)
Quarter: 2016Q1

REPORT INFORMATION
  Report Type: Report from Study
  Country: US (occurrence: US)
  Receive Date: 20151012
  Receipt Date: 20160203
  Transmission Date: 20160525
  Serious: Yes (Other)
  Sender: FDA-Public Use
  Company Number: PHHY2014US072028

PATIENT
  Age: 64 Year
  Sex: Female

DRUGS (3)
  1. ADDERALL [Concomitant]
     Active Substance: AMPHETAMINE ASPARTATE\AMPHETAMINE SULFATE\DEXTROAMPHETAMINE SACCHARATE\DEXTROAMPHETAMINE SULFATE
     Indication: FATIGUE
     Dosage: UNK
     Route: 065
     Dates: start: 20150119
  2. GILENYA [Suspect]
     Active Substance: FINGOLIMOD HYDROCHLORIDE
     Indication: MULTIPLE SCLEROSIS
     Dosage: UNK, QD
     Route: 048
  3. TRINTELLIX [Concomitant]
     Active Substance: VORTIOXETINE HYDROBROMIDE
     Indication: DEPRESSION
     Dosage: UNK
     Route: 065
     Dates: start: 20150119

REACTIONS (5)
  - Chronic obstructive pulmonary disease [Recovered/Resolved]
  - Bronchitis [Not Recovered/Not Resolved]
  - Urinary tract infection [Recovered/Resolved]
  - Urinary tract infection [Recovered/Resolved]
  - Atrial fibrillation [Unknown]

NARRATIVE: CASE EVENT DATE: 20131006
